FAERS Safety Report 8374590 (Version 4)
Quarter: 2014Q2

REPORT INFORMATION
  Report Type: Spontaneous
  Country: US (occurrence: US)
  Receive Date: 20120130
  Receipt Date: 20140428
  Transmission Date: 20141212
  Serious: Yes (Other)
  Sender: FDA-Public Use
  Company Number: US-PFIZER INC-2012019489

PATIENT
  Age: 63 Year
  Sex: Male
  Weight: 83.9 kg

DRUGS (1)
  1. LYRICA [Suspect]
     Indication: BACK PAIN
     Dosage: 200 MG, 3X/DAY
     Dates: start: 2008, end: 20120813

REACTIONS (5)
  - Withdrawal syndrome [Unknown]
  - Mental status changes [Unknown]
  - Abnormal behaviour [Unknown]
  - Memory impairment [Unknown]
  - Hallucination [Unknown]
